APPROVED DRUG PRODUCT: TRIMETHOBENZAMIDE HYDROCHLORIDE
Active Ingredient: TRIMETHOBENZAMIDE HYDROCHLORIDE
Strength: 300MG
Dosage Form/Route: CAPSULE;ORAL
Application: A205950 | Product #001 | TE Code: AB
Applicant: HERITAGE PHARMA LABS INC DBA AVET PHARMACEUTICALS LABS INC
Approved: Nov 21, 2023 | RLD: No | RS: Yes | Type: RX